FAERS Safety Report 21812183 (Version 1)
Quarter: 2022Q4

REPORT INFORMATION
  Report Type: Spontaneous
  Country: US (occurrence: None)
  Receive Date: 20221230
  Receipt Date: 20221230
  Transmission Date: 20230112
  Serious: Yes (Hospitalization)
  Sender: FDA-Public Use
  Company Number: None

PATIENT
  Sex: Female
  Weight: 60.21 kg

DRUGS (4)
  1. DEFERASIROX [Suspect]
     Active Substance: DEFERASIROX
     Indication: Evans syndrome
     Dosage: FREQUENCY : DAILY;?
     Route: 048
     Dates: start: 20221208
  2. DEFERASIROX [Suspect]
     Active Substance: DEFERASIROX
     Indication: Immune thrombocytopenia
  3. DEFERASIROX [Suspect]
     Active Substance: DEFERASIROX
     Indication: Immune thrombocytopenia
  4. TAVALISSE [Concomitant]
     Active Substance: FOSTAMATINIB
     Dates: start: 20220506

REACTIONS (1)
  - Haemoglobin decreased [None]
